FAERS Safety Report 7569901-X (Version None)
Quarter: 2011Q2

REPORT INFORMATION
  Report Type: 
  Country: None (occurrence: None)
  Receive Date: 20110622
  Receipt Date: 20110622
  Transmission Date: 20111010
  Serious: Yes (Hospitalization, Disabling)
  Sender: FDA-Public Use
  Company Number: None

PATIENT
  Age: 24 Year
  Sex: Male
  Weight: 67 kg

DRUGS (1)
  1. AMOXICILLIN [Suspect]
     Indication: ANIMAL BITE
     Dosage: 2 TABLET THRICE A DAY PO
     Route: 048
     Dates: start: 20110522, end: 20110525

REACTIONS (2)
  - PRURITUS [None]
  - RASH [None]
